FAERS Safety Report 5047650-X (Version None)
Quarter: 2006Q3

REPORT INFORMATION
  Report Type: 
  Country: None (occurrence: None)
  Receive Date: 20060705
  Receipt Date: 20060705
  Transmission Date: 20061208
  Serious: Yes (Disabling)
  Sender: FDA-Public Use
  Company Number: None

PATIENT
  Age: 58 Year
  Sex: Female
  Weight: 89 kg

DRUGS (1)
  1. ZINC SULFATE [Suspect]
     Indication: PROMOTION OF WOUND HEALING
     Dosage: 220 MG DAILY PO
     Route: 048
     Dates: start: 20060621, end: 20060628

REACTIONS (1)
  - NAUSEA [None]
